FAERS Safety Report 15531352 (Version 1)
Quarter: 2018Q4

REPORT INFORMATION
  Report Type: Spontaneous
  Country: US (occurrence: US)
  Receive Date: 20181019
  Receipt Date: 20181019
  Transmission Date: 20190205
  Serious: No
  Sender: FDA-Public Use
  Company Number: US-OCTA-WIL02218US

PATIENT
  Age: 12 Year
  Sex: Female

DRUGS (1)
  1. WILATE - VON WILLEBRAND FACTOR/COAGULATION FACTOR VIII COMPLEX (HUMAN) [Suspect]
     Active Substance: HUMAN COAGULATION FACTOR VIII/VON WILLEBRAND FACTOR COMPLEX
     Indication: PROPHYLAXIS
     Route: 042
     Dates: start: 201807, end: 201807

REACTIONS (2)
  - Urticaria [Unknown]
  - Chills [Unknown]

NARRATIVE: CASE EVENT DATE: 201807
